FAERS Safety Report 8778308 (Version 3)
Quarter: 2013Q1

REPORT INFORMATION
  Report Type: Spontaneous
  Country: GB (occurrence: GB)
  Receive Date: 20120911
  Receipt Date: 20121220
  Transmission Date: 20140127
  Serious: Yes (Disabling)
  Sender: FDA-Public Use
  Company Number: GB-ACCORD-014613

PATIENT
  Age: 71 Year
  Sex: Male

DRUGS (8)
  1. SIMVASTATIN [Suspect]
     Indication: HYPERCHOLESTEROLAEMIA
     Dosage: ONE AT NIGHT
     Route: 048
     Dates: start: 20120730, end: 20120802
  2. CLOPIDOGREL [Suspect]
     Indication: ANTIPLATELET THERAPY
     Dosage: UNK, QD
     Route: 048
     Dates: start: 20120730
  3. EZETROL (EZETROL) [Concomitant]
     Dosage: 1 TIMES/PER 1 DAYS/ORAL
     Route: 048
     Dates: start: 20120808, end: 20120810
  4. ATORVASTATIN (ATORVASTATIN) [Suspect]
     Indication: HYPERCHOLESTEROLAEMIA
     Route: 048
     Dates: start: 20120803, end: 20120807
  5. ASPIRIN (ASPIRIN) [Concomitant]
     Indication: HYPERCHOLESTEROLAEMIA
     Dosage: UNK, QD
  6. FEXOFENADINE [Concomitant]
  7. FLUCLOXACILLIN (FLUCLOXACILLIN) [Concomitant]
     Indication: HYPERCHOLESTEROLAEMIA
     Dosage: ONE AT NIGHT
  8. LACTULOSE (LACTULOSE) [Concomitant]

REACTIONS (2)
  - Cough [Not Recovered/Not Resolved]
  - Dyspnoea [Not Recovered/Not Resolved]
